FAERS Safety Report 13921689 (Version 2)
Quarter: 2017Q3

REPORT INFORMATION
  Report Type: Spontaneous
  Country: ZA (occurrence: ZA)
  Receive Date: 20170830
  Receipt Date: 20170920
  Transmission Date: 20171127
  Serious: Yes (Other)
  Sender: FDA-Public Use
  Company Number: ZA-SA-2017SA158216

PATIENT
  Sex: Male

DRUGS (1)
  1. FABRAZYME [Suspect]
     Active Substance: AGALSIDASE BETA
     Indication: FABRY^S DISEASE
     Route: 041

REACTIONS (4)
  - Chest pain [Unknown]
  - Renal impairment [Unknown]
  - Pain in extremity [Unknown]
  - Nausea [Unknown]

NARRATIVE: CASE EVENT DATE: 2017
